FAERS Safety Report 15130516 (Version 1)
Quarter: 2018Q3

REPORT INFORMATION
  Report Type: Spontaneous
  Country: US (occurrence: US)
  Receive Date: 20180711
  Receipt Date: 20180711
  Transmission Date: 20181010
  Serious: Yes (Death, Hospitalization)
  Sender: FDA-Public Use
  Company Number: US-LPDUSPRD-20181226

PATIENT
  Age: 11 Month
  Sex: Female

DRUGS (10)
  1. BUSULFAN INJECTION (0517?0920?01) [Suspect]
     Active Substance: BUSULFAN
     Dosage: 1 MG/KG EVERY 6 HRS X 16 DOSES
     Route: 065
  2. MESNA. [Concomitant]
     Active Substance: MESNA
     Dosage: UNKNOWN
     Route: 065
  3. CYCLOSPORINE INJECTION, USP (866?10) [Concomitant]
     Active Substance: CYCLOSPORINE
     Dosage: 1 MG/KG/DAY
     Route: 065
  4. ACYCLOVIR. [Concomitant]
     Active Substance: ACYCLOVIR
     Dosage: UNKNOWN
     Route: 065
  5. LOW?DOSE HEPARIN INFUSION [Concomitant]
     Dosage: 100 UNITS/KG/DAY
     Route: 042
  6. CYCLOPHOSPHAMIDE. [Concomitant]
     Active Substance: CYCLOPHOSPHAMIDE
     Dosage: 50 MG/KG/DOSE
     Route: 065
  7. METHYLPREDNISOLONE. [Concomitant]
     Active Substance: METHYLPREDNISOLONE
     Dosage: 1 MG/KG/DAY
     Route: 065
  8. FILGRASTIM [Concomitant]
     Active Substance: FILGRASTIM
     Dosage: 5 TO 10 MCG/KG/DAY
     Route: 065
  9. IMMUNOGLOBULIN IV [Concomitant]
     Active Substance: HUMAN IMMUNOGLOBULIN G
     Dosage: 500 MG/KG/DOSE WEEKLY
     Route: 042
  10. EQUINE ANTITHYMOCYTE GLOBULIN [Concomitant]
     Active Substance: EQUINE THYMOCYTE IMMUNE GLOBULIN
     Dosage: 30 MG/KG/DOSE
     Route: 065

REACTIONS (3)
  - Product use in unapproved indication [Unknown]
  - Hepatorenal syndrome [Fatal]
  - Venoocclusive disease [Fatal]
